FAERS Safety Report 21548682 (Version 2)
Quarter: 2022Q4

REPORT INFORMATION
  Report Type: Spontaneous
  Country: US (occurrence: None)
  Receive Date: 20221103
  Receipt Date: 20221214
  Transmission Date: 20230113
  Serious: Yes (Hospitalization, Other)
  Sender: FDA-Public Use
  Company Number: 2022A357884

PATIENT
  Age: 22575 Day
  Sex: Female

DRUGS (1)
  1. TEZSPIRE [Suspect]
     Active Substance: TEZEPELUMAB-EKKO
     Dosage: UNKNOWN
     Route: 065
     Dates: start: 20220926, end: 20221024

REACTIONS (10)
  - Haemoglobin decreased [Unknown]
  - Blood albumin decreased [Unknown]
  - Peripheral swelling [Unknown]
  - Swelling [Unknown]
  - Illness [Unknown]
  - Platelet count decreased [Unknown]
  - Blood test abnormal [Unknown]
  - Blood pressure fluctuation [Unknown]
  - Neutrophil count decreased [Unknown]
  - Injection site discomfort [Unknown]

NARRATIVE: CASE EVENT DATE: 20221006
